FAERS Safety Report 8537105-X (Version None)
Quarter: 2012Q3

REPORT INFORMATION
  Report Type: 
  Country: None (occurrence: None)
  Receive Date: 20120725
  Receipt Date: 20120716
  Transmission Date: 20120928
  Serious: Yes (Hospitalization)
  Sender: FDA-Public Use
  Company Number: US-BAYER-2012-072640

PATIENT
  Age: 40 Year
  Sex: Female

DRUGS (20)
  1. SODIUM CHLORIDE [Concomitant]
     Dosage: 1000 ML, UNK
     Route: 042
  2. DIAZEPAM [Concomitant]
     Dosage: 10 MG, UNK
  3. TRAMADOL HYDROCHLORIDE [Concomitant]
     Dosage: 50 MG, UNK
  4. TORADOL [Concomitant]
     Dosage: 30 MG, UNK
  5. COLACE [Concomitant]
     Dosage: 100 MG, BID
     Dates: start: 20110601
  6. DROSPIRENONE AND ETHINYL ESTRADIOL [Suspect]
  7. SYNTHROID [Concomitant]
     Dosage: 150 ?G, UNK
  8. YAZ [Suspect]
     Dosage: UNK
     Dates: end: 20110601
  9. DILAUDID [Concomitant]
     Dosage: 2 MG, UNK
     Route: 042
  10. FLURINOL [Concomitant]
  11. LEVOTHYROXINE SODIUM [Concomitant]
     Dosage: 0.15 MG, DAILY
     Dates: start: 20110601
  12. LAMOTRIGINE [Concomitant]
     Dosage: 25 DAILY
  13. MILK OF MAGNESIA TAB [Concomitant]
     Dosage: 15 ML, PRN
     Dates: start: 20110601
  14. ZOFRAN [Concomitant]
     Dosage: 8 MG, UNK
  15. TOPIRAMATE [Concomitant]
     Dosage: 25 DAILY
  16. CLONAZEPAM [Concomitant]
     Dosage: 1 MG, UNK
  17. FENTANYL [Concomitant]
     Dosage: 50 ?G, PER HOUR EVERY 72 HOURS
     Dates: start: 20110601
  18. SOLU-MEDROL [Concomitant]
     Dosage: 125 MG, UNK
     Route: 042
  19. TRAZODONE HYDROCHLORIDE [Concomitant]
     Dosage: 50 DAILY
  20. OXYCODONE HCL AND ACETAMINOPHEN [Concomitant]
     Dosage: 10/325 MG TABLET EVERY 4-6 HOURS AS NEEDED
     Dates: start: 20110601

REACTIONS (9)
  - ANXIETY [None]
  - MUSCULOSKELETAL PAIN [None]
  - PULMONARY INFARCTION [None]
  - PAIN [None]
  - BACK PAIN [None]
  - PLEURAL EFFUSION [None]
  - PULMONARY EMBOLISM [None]
  - NERVOUSNESS [None]
  - CHEST PAIN [None]
